FAERS Safety Report 15586733 (Version 1)
Quarter: 2018Q4

REPORT INFORMATION
  Report Type: Spontaneous
  Country: PL (occurrence: PL)
  Receive Date: 20181105
  Receipt Date: 20181105
  Transmission Date: 20190205
  Serious: Yes (Other)
  Sender: FDA-Public Use
  Company Number: PL-PROVELL PHARMACEUTICALS-2058414

PATIENT
  Sex: Female

DRUGS (7)
  1. MAGNESIUM [Suspect]
     Active Substance: MAGNESIUM
  2. GLUCOPHAGE [Suspect]
     Active Substance: METFORMIN HYDROCHLORIDE
  3. EUTHYROX [Suspect]
     Active Substance: LEVOTHYROXINE SODIUM
     Indication: PRODUCT USED FOR UNKNOWN INDICATION
  4. HEPARIN [Suspect]
     Active Substance: HEPARIN SODIUM
  5. ACARD [Suspect]
     Active Substance: ASPIRIN
  6. LUTEINE [PROGESTERONE] [Suspect]
     Active Substance: PROGESTERONE
  7. DOPEGYT [Suspect]
     Active Substance: METHYLDOPA

REACTIONS (4)
  - Abdominal pain upper [None]
  - Vaginal haemorrhage [None]
  - Failed in vitro fertilisation [None]
  - Back pain [None]
